FAERS Safety Report 9124522 (Version 1)
Quarter: 2013Q1

REPORT INFORMATION
  Report Type: Spontaneous
  Country: BR (occurrence: BR)
  Receive Date: 20130227
  Receipt Date: 20130227
  Transmission Date: 20140127
  Serious: Yes (Hospitalization, Disabling)
  Sender: FDA-Public Use
  Company Number: BR-ASTRAZENECA-2013SE11733

PATIENT
  Age: 28440 Day
  Sex: Female

DRUGS (2)
  1. ATACAND HCT [Suspect]
     Indication: HYPERTENSION
     Dosage: 16+12.5 MG
     Route: 048
     Dates: start: 2010
  2. ATACAND HCT [Suspect]
     Indication: ARRHYTHMIA
     Dosage: 16+12.5 MG
     Route: 048
     Dates: start: 2010

REACTIONS (2)
  - Fall [Recovered/Resolved]
  - Upper limb fracture [Recovered/Resolved]
